FAERS Safety Report 5520021-5 (Version None)
Quarter: 2007Q4

REPORT INFORMATION
  Report Type: 
  Country: None (occurrence: None)
  Receive Date: 20071114
  Receipt Date: 20071102
  Transmission Date: 20080405
  Serious: Yes (Other)
  Sender: FDA-Public Use
  Company Number: 340002M07USA

PATIENT
  Age: 38 Year
  Sex: Male

DRUGS (2)
  1. OVIDREL [Suspect]
     Indication: OFF LABEL USE
     Dosage: 250 MCG, 3 IN 1 WEEKS
     Dates: start: 20050101
  2. TESTIM CREAM (TESTOSTERONE) [Concomitant]

REACTIONS (4)
  - BLOOD HUMAN CHORIONIC GONADOTROPIN INCREASED [None]
  - INGUINAL HERNIA [None]
  - INJURY [None]
  - TESTIS CANCER [None]
